FAERS Safety Report 19211227 (Version 1)
Quarter: 2021Q2

REPORT INFORMATION
  Report Type: Spontaneous
  Country: US (occurrence: US)
  Receive Date: 20210504
  Receipt Date: 20210504
  Transmission Date: 20210717
  Serious: No
  Sender: FDA-Public Use
  Company Number: US-RECORDATI RARE DISEASE INC.-2020004191

PATIENT

DRUGS (1)
  1. CARBAGLU [Suspect]
     Active Substance: CARGLUMIC ACID
     Indication: HYPERGLYCINAEMIA
     Dosage: 3 (200 MILLIGRAM) TABLETS TWICE DAILY AND 2 200 MG TABLETS TWICE DAILY

REACTIONS (4)
  - Off label use [Unknown]
  - Vomiting [Unknown]
  - Ammonia increased [Unknown]
  - Fatigue [Unknown]

NARRATIVE: CASE EVENT DATE: 20200919
